FAERS Safety Report 7368389-1 (Version None)
Quarter: 2011Q1

REPORT INFORMATION
  Report Type: 
  Country: None (occurrence: None)
  Receive Date: 20110323
  Receipt Date: 20110307
  Transmission Date: 20110831
  Serious: Yes (Other)
  Sender: FDA-Public Use
  Company Number: NL-JNJFOC-20110305883

PATIENT
  Age: 44 Year
  Sex: Male
  Weight: 71 kg

DRUGS (1)
  1. INFLIXIMAB [Suspect]
     Indication: HIDRADENITIS
     Dosage: 15 INFUSIONS
     Route: 042

REACTIONS (1)
  - ARTHRITIS [None]
